FAERS Safety Report 6032477-2 (Version None)
Quarter: 2008Q4

REPORT INFORMATION
  Report Type: 
  Country: None (occurrence: None)
  Receive Date: 20081224
  Receipt Date: 20080924
  Transmission Date: 20090506
  Serious: No
  Sender: FDA-Public Use
  Company Number: 2008PV036769

PATIENT
  Age: 52 Year
  Sex: Female
  Weight: 117.9352 kg

DRUGS (9)
  1. SYMLIN [Suspect]
     Indication: TYPE 2 DIABETES MELLITUS
     Dosage: 120 MCG;TID;SC; 360 MCG;TID;SC; 270 MCG;TID;SC; 60 MCG;TID;SC
     Route: 058
     Dates: start: 20080101, end: 20080801
  2. SYMLIN [Suspect]
     Indication: TYPE 2 DIABETES MELLITUS
     Dosage: 120 MCG;TID;SC; 360 MCG;TID;SC; 270 MCG;TID;SC; 60 MCG;TID;SC
     Route: 058
     Dates: start: 20080801, end: 20080801
  3. SYMLIN [Suspect]
     Indication: TYPE 2 DIABETES MELLITUS
     Dosage: 120 MCG;TID;SC; 360 MCG;TID;SC; 270 MCG;TID;SC; 60 MCG;TID;SC
     Route: 058
     Dates: start: 20080801, end: 20080923
  4. SYMLIN [Suspect]
     Indication: TYPE 2 DIABETES MELLITUS
     Dosage: 120 MCG;TID;SC; 360 MCG;TID;SC; 270 MCG;TID;SC; 60 MCG;TID;SC
     Route: 058
     Dates: start: 20080924
  5. LANTUS [Concomitant]
  6. METFORMIN [Concomitant]
  7. BYETTA [Concomitant]
  8. PRINIVIL [Concomitant]
  9. LIPITOR [Concomitant]

REACTIONS (6)
  - ACCIDENTAL OVERDOSE [None]
  - BLOOD GLUCOSE INCREASED [None]
  - HEADACHE [None]
  - INCORRECT DOSE ADMINISTERED [None]
  - NAUSEA [None]
  - SOMNOLENCE [None]
